FAERS Safety Report 24657343 (Version 2)
Quarter: 2024Q4

REPORT INFORMATION
  Report Type: Spontaneous
  Country: IT (occurrence: IT)
  Receive Date: 20241125
  Receipt Date: 20241210
  Transmission Date: 20250114
  Serious: Yes (Death)
  Sender: IMMUNOCORE
  Company Number: IT-IMMUNOCORE, LTD-2024-IMC-003385

PATIENT

DRUGS (1)
  1. KIMMTRAK [Suspect]
     Active Substance: TEBENTAFUSP-TEBN
     Indication: Uveal melanoma
     Dosage: 0.07 MILLIGRAM
     Route: 042
     Dates: start: 20240924, end: 20241108

REACTIONS (7)
  - Pyrexia [Fatal]
  - Acute kidney injury [Fatal]
  - Anuria [Fatal]
  - Hepatic function abnormal [Fatal]
  - Respiratory failure [Fatal]
  - Hypotension [Fatal]
  - Cytokine release syndrome [Fatal]

NARRATIVE: CASE EVENT DATE: 20241108
